FAERS Safety Report 13474308 (Version 4)
Quarter: 2017Q3

REPORT INFORMATION
  Report Type: Spontaneous
  Country: US (occurrence: US)
  Receive Date: 20170424
  Receipt Date: 20170714
  Transmission Date: 20171127
  Serious: No
  Sender: FDA-Public Use
  Company Number: US-PFIZER INC-2017178299

PATIENT
  Age: 58 Year
  Sex: Female
  Weight: 99.79 kg

DRUGS (3)
  1. LYRICA [Suspect]
     Active Substance: PREGABALIN
     Dosage: 100 MG, UNK (MORNING 100 MG 2 TAB AND NIGHT)
     Route: 048
     Dates: start: 20170101
  2. LYRICA [Suspect]
     Active Substance: PREGABALIN
     Dosage: 200 MG, 2X/DAY
     Dates: start: 201602
  3. LYRICA [Suspect]
     Active Substance: PREGABALIN
     Indication: DIABETIC NEUROPATHY
     Dosage: 1 DF, 2X/DAY
     Route: 048

REACTIONS (2)
  - Drug ineffective [Recovered/Resolved]
  - Intentional product use issue [Recovered/Resolved]
